FAERS Safety Report 7209351-9 (Version None)
Quarter: 2011Q1

REPORT INFORMATION
  Report Type: 
  Country: None (occurrence: None)
  Receive Date: 20110104
  Receipt Date: 20101126
  Transmission Date: 20110831
  Serious: No
  Sender: FDA-Public Use
  Company Number: US-BAYER-2010-006792

PATIENT
  Sex: Female
  Weight: 63.492 kg

DRUGS (1)
  1. ALEVE [Suspect]
     Dosage: UNK
     Route: 048

REACTIONS (2)
  - CHOKING SENSATION [None]
  - HEADACHE [None]
